FAERS Safety Report 12636865 (Version 6)
Quarter: 2016Q4

REPORT INFORMATION
  Report Type: Report from Study
  Country: CA (occurrence: CA)
  Receive Date: 20160809
  Receipt Date: 20161229
  Transmission Date: 20170207
  Serious: Yes (Hospitalization, Other)
  Sender: FDA-Public Use
  Company Number: CA-BIOGEN-2016BI00273994

PATIENT
  Age: 55 Year
  Sex: Female

DRUGS (1)
  1. TYSABRI [Suspect]
     Active Substance: NATALIZUMAB
     Indication: MULTIPLE SCLEROSIS
     Dosage: INFUSED OVER 1 HOUR
     Route: 042
     Dates: start: 20121228, end: 201606

REACTIONS (16)
  - Fall [Recovered/Resolved]
  - Disseminated intravascular coagulation [Unknown]
  - Nephrolithiasis [Unknown]
  - Urinary tract infection [Recovered/Resolved]
  - Dehydration [Recovered/Resolved]
  - Loss of consciousness [Recovered/Resolved]
  - Incontinence [Recovered/Resolved]
  - Acute kidney injury [Unknown]
  - Multiple sclerosis relapse [Unknown]
  - Decubitus ulcer [Not Recovered/Not Resolved]
  - Hypertension [Unknown]
  - Concussion [Recovered/Resolved]
  - Syncope [Unknown]
  - Septic shock [Unknown]
  - Pyelonephritis [Unknown]
  - Sepsis [Unknown]

NARRATIVE: CASE EVENT DATE: 201607
